FAERS Safety Report 5716354-X (Version None)
Quarter: 2008Q2

REPORT INFORMATION
  Report Type: 
  Country: None (occurrence: None)
  Receive Date: 20080424
  Receipt Date: 20080422
  Transmission Date: 20081010
  Serious: Yes (Life-Threatening, Hospitalization)
  Sender: FDA-Public Use
  Company Number: US-BRISTOL-MYERS SQUIBB COMPANY-14161285

PATIENT
  Age: 61 Year
  Sex: Female
  Weight: 64 kg

DRUGS (7)
  1. DASATINIB [Suspect]
     Indication: NEOPLASM MALIGNANT
     Route: 048
     Dates: start: 20080421, end: 20080421
  2. CETUXIMAB [Suspect]
     Indication: NEOPLASM MALIGNANT
  3. SYNTHROID [Concomitant]
  4. PRINIVIL [Concomitant]
  5. FOLIC ACID [Concomitant]
  6. FELDENE [Concomitant]
  7. ZYRTEC [Concomitant]

REACTIONS (1)
  - HYPERSENSITIVITY [None]
